FAERS Safety Report 8988378 (Version 3)
Quarter: 2013Q1

REPORT INFORMATION
  Report Type: Spontaneous
  Country: DE (occurrence: None)
  Receive Date: 20121218
  Receipt Date: 20130122
  Transmission Date: 20140127
  Serious: Yes (Hospitalization)
  Sender: FDA-Public Use
  Company Number: 2012MPI00565

PATIENT
  Age: 22 Year
  Sex: Male

DRUGS (6)
  1. BRENTUXIMAB VEDOTIN [Suspect]
     Indication: HODGKIN^S DISEASE
     Route: 042
     Dates: start: 20121119, end: 20121119
  2. CYCLOPHOSPHAMIDE (CYCLOPHOSPHAMIDE) [Suspect]
     Indication: HODGKIN^S DISEASE
     Dates: start: 20121120, end: 20121120
  3. DOXORUBICIN (DOXORUBICIN) (DOXORUBICIN) [Suspect]
     Indication: HODGKIN^S DISEASE
     Dates: start: 20121120, end: 20121120
  4. ETOPOSIDE (ETOPOSIDE) [Suspect]
     Indication: HODGKIN^S DISEASE
     Dates: start: 20121120, end: 20121122
  5. DACARBAZINE [Suspect]
     Indication: HODGKIN^S DISEASE
     Dates: start: 20121121, end: 20121122
  6. DEXAMETHASONE (DEXAMETHASONE) [Suspect]
     Indication: HODGKIN^S DISEASE
     Dates: start: 20121120, end: 20121123

REACTIONS (5)
  - Febrile neutropenia [None]
  - Diarrhoea [None]
  - Platelet count decreased [None]
  - Haemoglobin decreased [None]
  - Febrile bone marrow aplasia [None]
